FAERS Safety Report 9383650 (Version 2)
Quarter: 2013Q3

REPORT INFORMATION
  Report Type: Report from Study
  Country: IT (occurrence: IT)
  Receive Date: 20130704
  Receipt Date: 20130719
  Transmission Date: 20140515
  Serious: Yes (Hospitalization)
  Sender: FDA-Public Use
  Company Number: IT-PFIZER INC-2013193354

PATIENT
  Age: 55 Year
  Sex: Female
  Weight: 90 kg

DRUGS (4)
  1. ENBREL [Suspect]
     Indication: RHEUMATOID ARTHRITIS
     Dosage: 50 MG, DAY 1 EACH CYCLE EVERY 7 DAYS
     Dates: start: 20120628, end: 20130626
  2. METHYLPREDNISOLONE [Suspect]
     Indication: RHEUMATOID ARTHRITIS
     Dosage: UNK
     Route: 048
     Dates: start: 20120327
  3. ESOMEPRAZOLE [Concomitant]
     Indication: GASTRITIS PROPHYLAXIS
     Dosage: UNK
     Route: 048
     Dates: start: 20120327
  4. HEPARINA [Concomitant]
     Indication: THROMBOPHLEBITIS
     Dosage: UNK
     Route: 058
     Dates: start: 201303, end: 20130630

REACTIONS (1)
  - Pneumonia [Recovered/Resolved]
